FAERS Safety Report 15927005 (Version 1)
Quarter: 2019Q1

REPORT INFORMATION
  Report Type: Spontaneous
  Country: CN (occurrence: CN)
  Receive Date: 20190206
  Receipt Date: 20190206
  Transmission Date: 20190417
  Serious: Yes (Other)
  Sender: FDA-Public Use
  Company Number: CN-PFIZER INC-2019049195

PATIENT
  Age: 76 Year
  Sex: Male
  Weight: 65 kg

DRUGS (4)
  1. TYGACIL [Suspect]
     Active Substance: TIGECYCLINE
     Indication: ANTIFUNGAL TREATMENT
  2. VFEND [Suspect]
     Active Substance: VORICONAZOLE
     Indication: ANTIFUNGAL TREATMENT
  3. VFEND [Suspect]
     Active Substance: VORICONAZOLE
     Indication: LYMPHOMA
     Dosage: 0.3G, (Q12H) 2X/DAY
     Route: 041
     Dates: start: 20190112, end: 20190120
  4. TYGACIL [Suspect]
     Active Substance: TIGECYCLINE
     Indication: LYMPHOMA
     Dosage: 100 MG, 2X/DAY
     Route: 041
     Dates: start: 20190113, end: 20190120

REACTIONS (4)
  - Somnolence [Recovered/Resolved]
  - Halo vision [Recovering/Resolving]
  - Product use issue [Unknown]
  - Dysarthria [Recovered/Resolved]

NARRATIVE: CASE EVENT DATE: 20190113
